FAERS Safety Report 13462762 (Version 2)
Quarter: 2017Q2

REPORT INFORMATION
  Report Type: Spontaneous
  Country: US (occurrence: US)
  Receive Date: 20170420
  Receipt Date: 20170509
  Transmission Date: 20170830
  Serious: No
  Sender: FDA-Public Use
  Company Number: US-PFIZER INC-2017165495

PATIENT
  Sex: Male
  Weight: 94 kg

DRUGS (1)
  1. SOMAVERT [Suspect]
     Active Substance: PEGVISOMANT
     Indication: ACROMEGALY
     Dosage: 10 MG, UNK
     Dates: start: 201510

REACTIONS (3)
  - Product quality issue [Unknown]
  - Injection site pain [Unknown]
  - Injection site bruising [Unknown]
